FAERS Safety Report 23736192 (Version 3)
Quarter: 2024Q2

REPORT INFORMATION
  Report Type: Spontaneous
  Country: GR (occurrence: GR)
  Receive Date: 20240412
  Receipt Date: 20240624
  Transmission Date: 20240715
  Serious: Yes (Hospitalization, Other)
  Sender: FDA-Public Use
  Company Number: GR-BEH-2024170461

PATIENT
  Sex: Male

DRUGS (2)
  1. BERINERT [Suspect]
     Active Substance: HUMAN C1-ESTERASE INHIBITOR
     Indication: Hereditary angioedema
     Dosage: 1500 IU, SINGLE
     Route: 042
     Dates: start: 20240331, end: 20240331
  2. BERINERT [Suspect]
     Active Substance: HUMAN C1-ESTERASE INHIBITOR
     Indication: Hereditary angioedema
     Dosage: 1500 IU, SINGLE
     Route: 042
     Dates: start: 20240331, end: 20240331

REACTIONS (3)
  - Drug ineffective [Unknown]
  - Deep vein thrombosis [Unknown]
  - Pulmonary embolism [Unknown]

NARRATIVE: CASE EVENT DATE: 20240331
